FAERS Safety Report 6236801-7 (Version None)
Quarter: 2009Q2

REPORT INFORMATION
  Report Type: 
  Country: None (occurrence: None)
  Receive Date: 20090615
  Receipt Date: 20090520
  Transmission Date: 20091009
  Serious: Yes (Other)
  Sender: FDA-Public Use
  Company Number: A0785294A

PATIENT
  Age: 76 Year
  Sex: Female

DRUGS (1)
  1. HYDROGEN PEROXIDE SOLUTION (FORMULATION UNKNOWN) (HYDROGEN PEROXIDE SO [Suspect]
     Indication: DENTAL COSMETIC PROCEDURE
     Dosage: DENTAL
     Route: 004

REACTIONS (5)
  - CHOKING [None]
  - FOAMING AT MOUTH [None]
  - NONSPECIFIC REACTION [None]
  - ORAL DISCOMFORT [None]
  - PRODUCT QUALITY ISSUE [None]
